FAERS Safety Report 8892079 (Version 1)
Quarter: 2012Q4

REPORT INFORMATION
  Report Type: 
  Country: US (occurrence: US)
  Receive Date: 20121107
  Receipt Date: 20121107
  Transmission Date: 20130627
  Serious: No
  Sender: FDA-Public Use
  Company Number: US-AMGEN-USASP2011060812

PATIENT
  Age: 49 Year
  Sex: Female
  Weight: 95.24 kg

DRUGS (6)
  1. ENBREL [Suspect]
     Indication: PRODUCT USED FOR UNKNOWN INDICATION
     Dosage: 50 mg, qwk
     Route: 058
  2. TRAMADOL [Concomitant]
     Dosage: 50 mg, UNK
  3. LISINOPRIL HCTZ [Concomitant]
  4. CYMBALTA [Concomitant]
     Dosage: 60 mg, UNK
  5. HYDROXYZINE HCL [Concomitant]
     Dosage: 25 mg, UNK
  6. HYDROCO/APAP [Concomitant]
     Dosage: 10-500 mg

REACTIONS (3)
  - Dyskinesia [Unknown]
  - Restlessness [Unknown]
  - Tremor [Unknown]
